FAERS Safety Report 12456936 (Version 2)
Quarter: 2016Q2

REPORT INFORMATION
  Report Type: Spontaneous
  Country: TR (occurrence: TR)
  Receive Date: 20160610
  Receipt Date: 20160615
  Transmission Date: 20160815
  Serious: Yes (Hospitalization, Other)
  Sender: FDA-Public Use
  Company Number: TR-BRISTOL-MYERS SQUIBB COMPANY-BMS-2016-043908

PATIENT
  Age: 6 Year
  Sex: Male

DRUGS (6)
  1. FLUOXETINE [Concomitant]
     Active Substance: FLUOXETINE HYDROCHLORIDE
     Indication: ATTENTION DEFICIT/HYPERACTIVITY DISORDER
     Dosage: 10 MG, QD
     Route: 065
  2. ARIPIPRAZOLE. [Suspect]
     Active Substance: ARIPIPRAZOLE
     Indication: ATTENTION DEFICIT/HYPERACTIVITY DISORDER
     Dosage: UNK
     Route: 065
  3. BIPERIDEN [Concomitant]
     Active Substance: BIPERIDEN
     Indication: DYSTONIA
     Dosage: 5 MG, UNK
     Route: 051
  4. ARIPIPRAZOLE. [Suspect]
     Active Substance: ARIPIPRAZOLE
     Indication: OBSESSIVE-COMPULSIVE DISORDER
  5. FLUOXETINE [Concomitant]
     Active Substance: FLUOXETINE HYDROCHLORIDE
     Indication: OBSESSIVE-COMPULSIVE DISORDER
  6. ATOMOXETINE [Concomitant]
     Active Substance: ATOMOXETINE
     Indication: PRODUCT USED FOR UNKNOWN INDICATION
     Dosage: 18 MG, QD
     Route: 065

REACTIONS (5)
  - Off label use [Recovered/Resolved]
  - Dystonia [Unknown]
  - Gaze palsy [Recovered/Resolved]
  - Vomiting [Recovered/Resolved]
  - Dysphagia [Recovered/Resolved]
